FAERS Safety Report 7383291-7 (Version None)
Quarter: 2011Q1

REPORT INFORMATION
  Report Type: 
  Country: None (occurrence: None)
  Receive Date: 20110330
  Receipt Date: 20110325
  Transmission Date: 20110831
  Serious: Yes (Other)
  Sender: FDA-Public Use
  Company Number: BE-BRISTOL-MYERS SQUIBB COMPANY-15628233

PATIENT
  Age: 41 Year
  Sex: Male

DRUGS (4)
  1. ZOLEDRONIC ACID [Suspect]
     Indication: BREAST CANCER METASTATIC
  2. TAMOXIFEN CITRATE [Suspect]
     Indication: BREAST CANCER METASTATIC
  3. CYCLOPHOSPHAMIDE [Suspect]
     Indication: BREAST CANCER METASTATIC
     Dosage: 1 DF: 600 MG/M
     Route: 042
  4. DOXORUBICIN [Suspect]
     Indication: BREAST CANCER METASTATIC

REACTIONS (1)
  - BRONCHIOLITIS [None]
